FAERS Safety Report 7067925 (Version 2)
Quarter: 2020Q3

REPORT INFORMATION
  Report Type: Report from Study
  Country: IL (occurrence: IL)
  Receive Date: 20090730
  Receipt Date: 20111129
  Transmission Date: 20201105
  Serious: Yes (Hospitalization)
  Sender: FDA-Public Use
  Company Number: IL-JNJFOC-20080902843

PATIENT
  Age: 32 Year
  Sex: Male
  Weight: 73 kg

DRUGS (15)
  1. ERYTHROMYCIN. [Concomitant]
     Active Substance: ERYTHROMYCIN
     Route: 061
     Dates: start: 20080820, end: 20080903
  2. AMINOSALICYLIC ACID [Concomitant]
     Active Substance: AMINOSALICYLIC ACID
     Indication: COLITIS ULCERATIVE
     Route: 048
  3. TIMOLOL. [Concomitant]
     Active Substance: TIMOLOL
     Route: 047
  4. PRILOSEC [Concomitant]
     Active Substance: OMEPRAZOLE MAGNESIUM
     Route: 048
  5. VITAMIN B6 [Concomitant]
     Active Substance: PYRIDOXINE HYDROCHLORIDE
     Route: 048
     Dates: start: 20080720
  6. AFLUMYCIN [Concomitant]
     Route: 061
     Dates: start: 20080820, end: 20080903
  7. GOLIMUMAB [Suspect]
     Active Substance: GOLIMUMAB
     Route: 058
     Dates: start: 20080730
  8. TRICLOSAN. [Concomitant]
     Active Substance: TRICLOSAN
     Route: 061
     Dates: start: 20080820, end: 20080903
  9. ISONIAZID. [Concomitant]
     Active Substance: ISONIAZID
     Route: 048
     Dates: start: 20080716
  10. CLONAZEPAM. [Concomitant]
     Active Substance: CLONAZEPAM
     Route: 048
  11. NORVASC [Concomitant]
     Active Substance: AMLODIPINE BESYLATE
     Route: 048
  12. PREDNISONE. [Concomitant]
     Active Substance: PREDNISONE
     Indication: COLITIS ULCERATIVE
     Route: 048
  13. CALAMINE [Concomitant]
     Active Substance: CALAMINE\FERRIC OXIDE RED\ZINC OXIDE
     Route: 061
     Dates: start: 20080903
  14. GOLIMUMAB [Suspect]
     Active Substance: GOLIMUMAB
     Indication: COLITIS ULCERATIVE
     Route: 058
     Dates: start: 20080820
  15. AZATHIOPRINE. [Concomitant]
     Active Substance: AZATHIOPRINE
     Indication: COLITIS ULCERATIVE
     Route: 048

REACTIONS (1)
  - Gastroenteritis [Recovered/Resolved]

NARRATIVE: CASE EVENT DATE: 20080906
